FAERS Safety Report 4683999-8 (Version None)
Quarter: 2005Q2

REPORT INFORMATION
  Report Type: 
  Country: None (occurrence: None)
  Receive Date: 20050602
  Receipt Date: 20050222
  Transmission Date: 20051028
  Serious: No
  Sender: FDA-Public Use
  Company Number: MPS1-10328

PATIENT
  Age: 4 Year
  Sex: Male

DRUGS (2)
  1. ALDURAZYME [Suspect]
     Indication: MUCOPOLYSACCHARIDOSIS IH
     Dosage: 0.58 MG QWK IV
     Route: 042
     Dates: start: 20030723
  2. ALBUTEROL [Concomitant]

REACTIONS (2)
  - BLOOD PRESSURE INCREASED [None]
  - URTICARIA [None]
